FAERS Safety Report 10902683 (Version 8)
Quarter: 2016Q4

REPORT INFORMATION
  Report Type: Report from Study
  Country: JP (occurrence: JP)
  Receive Date: 20150310
  Receipt Date: 20161017
  Transmission Date: 20170206
  Serious: Yes (Death, Hospitalization, Other)
  Sender: FDA-Public Use
  Company Number: JP-INCYTE CORPORATION-2015IN000950

PATIENT
  Age: 81 Year
  Sex: Female

DRUGS (7)
  1. JAKAVI [Suspect]
     Active Substance: RUXOLITINIB
     Dosage: 10 MG, BID
     Route: 048
     Dates: start: 20141225, end: 20150406
  2. TALION [Concomitant]
     Active Substance: BEPOTASTINE
     Indication: PRODUCT USED FOR UNKNOWN INDICATION
     Dosage: UNK
     Route: 048
  3. JAKAVI [Suspect]
     Active Substance: RUXOLITINIB
     Indication: PRIMARY MYELOFIBROSIS
     Dosage: 5 MG, BID
     Route: 048
     Dates: start: 20141128, end: 20141224
  4. JAKAVI [Suspect]
     Active Substance: RUXOLITINIB
     Dosage: 25 MG, QD (10 MG IN MORNING AND 15 MG IN EVENING DAILY)
     Route: 048
     Dates: start: 20150518, end: 20150727
  5. CELECOX [Concomitant]
     Active Substance: CELECOXIB
     Indication: PRODUCT USED FOR UNKNOWN INDICATION
     Dosage: UNK
     Route: 048
     Dates: end: 20150105
  6. JAKAVI [Suspect]
     Active Substance: RUXOLITINIB
     Dosage: 5 MG, BID
     Route: 048
     Dates: start: 20150424, end: 20150503
  7. JAKAVI [Suspect]
     Active Substance: RUXOLITINIB
     Dosage: 10 MG, BID
     Route: 048
     Dates: start: 20150504, end: 20150517

REACTIONS (11)
  - Extradural haematoma [Recovered/Resolved]
  - Hepatic function abnormal [Recovering/Resolving]
  - Fall [Recovered/Resolved]
  - Platelet count decreased [Recovering/Resolving]
  - Abdominal pain upper [Unknown]
  - Myelofibrosis [Fatal]
  - Haemoglobin decreased [Unknown]
  - Pyelonephritis [Recovered/Resolved]
  - Abdominal distension [Recovered/Resolved]
  - Blood creatine phosphokinase increased [Recovering/Resolving]
  - Drug ineffective [Unknown]

NARRATIVE: CASE EVENT DATE: 20141201
